FAERS Safety Report 5980233-3 (Version None)
Quarter: 2008Q4

REPORT INFORMATION
  Report Type: 
  Country: None (occurrence: None)
  Receive Date: 20081202
  Receipt Date: 20081202
  Transmission Date: 20090506
  Serious: Yes (Hospitalization)
  Sender: FDA-Public Use
  Company Number: None

PATIENT
  Age: 76 Year
  Sex: Male
  Weight: 68.0396 kg

DRUGS (3)
  1. CIPRO [Suspect]
  2. ZYMAR [Concomitant]
  3. PREDNISONE TAB [Concomitant]

REACTIONS (8)
  - ABNORMAL DREAMS [None]
  - ARTHRALGIA [None]
  - INSOMNIA [None]
  - MOVEMENT DISORDER [None]
  - NERVE INJURY [None]
  - OEDEMA PERIPHERAL [None]
  - PAIN IN EXTREMITY [None]
  - PARAESTHESIA [None]
